FAERS Safety Report 9233224 (Version 1)
Quarter: 2013Q2

REPORT INFORMATION
  Report Type: Spontaneous
  Country: US (occurrence: US)
  Receive Date: 20130416
  Receipt Date: 20130416
  Transmission Date: 20140414
  Serious: Yes (Other)
  Sender: FDA-Public Use
  Company Number: US-BANPHARM-20130969

PATIENT
  Age: 64 Year
  Sex: Female
  Weight: 43.09 kg

DRUGS (4)
  1. ALEVE LIQUID GELS 220MG [Suspect]
     Dosage: 1 DF, ONCE,
     Route: 048
     Dates: start: 20120505, end: 20120505
  2. PRO AIR [Concomitant]
  3. SYMBICORT [Concomitant]
  4. DILTIAZEM [Concomitant]

REACTIONS (2)
  - Asthma [Recovered/Resolved]
  - Drug name confusion [Unknown]
